FAERS Safety Report 7591779-9 (Version None)
Quarter: 2011Q2

REPORT INFORMATION
  Report Type: 
  Country: None (occurrence: None)
  Receive Date: 20110627
  Receipt Date: 20110622
  Transmission Date: 20111010
  Serious: Yes (Other)
  Sender: FDA-Public Use
  Company Number: 2011SP020685

PATIENT
  Age: 44 Year
  Sex: Female
  Weight: 82 kg

DRUGS (4)
  1. PREDNISONE [Concomitant]
  2. THYRONAJOD [Concomitant]
  3. RESOCHIN [Concomitant]
  4. CERAZETTE (DESOGESTREL /00754001/) [Suspect]
     Indication: CONTRACEPTION
     Dosage: 1 DF; QD;
     Dates: start: 20051001

REACTIONS (1)
  - HODGKIN'S DISEASE [None]
